FAERS Safety Report 6717637-7 (Version None)
Quarter: 2010Q2

REPORT INFORMATION
  Report Type: 
  Country: None (occurrence: None)
  Receive Date: 20100510
  Receipt Date: 20100503
  Transmission Date: 20101027
  Serious: Yes (Disabling)
  Sender: FDA-Public Use
  Company Number: DK-ASTRAZENECA-2009SE33219

PATIENT
  Sex: Male
  Weight: 70 kg

DRUGS (2)
  1. SEROQUEL [Suspect]
     Indication: DEPRESSION
     Route: 048
     Dates: start: 20060322, end: 20060425
  2. CIPRAMIL [Concomitant]
     Dosage: 20 MILLIGRAM(S)
     Route: 048
     Dates: start: 20060101

REACTIONS (5)
  - CEREBELLAR SYNDROME [None]
  - EXTRAPYRAMIDAL DISORDER [None]
  - FATIGUE [None]
  - HYPOAESTHESIA FACIAL [None]
  - MYOCLONUS [None]
